FAERS Safety Report 9503821 (Version 2)
Quarter: 2014Q2

REPORT INFORMATION
  Report Type: Spontaneous
  Country: US (occurrence: US)
  Receive Date: 20130906
  Receipt Date: 20140424
  Transmission Date: 20141212
  Serious: Yes (Other)
  Sender: FDA-Public Use
  Company Number: US-JNJFOC-20130902305

PATIENT
  Age: 20 Year
  Sex: Male

DRUGS (6)
  1. RISPERDAL CONSTA [Suspect]
     Indication: SCHIZOAFFECTIVE DISORDER
     Route: 030
     Dates: start: 20130613
  2. RISPERDAL CONSTA [Suspect]
     Indication: SCHIZOAFFECTIVE DISORDER
     Route: 030
     Dates: start: 201308
  3. RISPERDAL CONSTA [Suspect]
     Indication: SCHIZOAFFECTIVE DISORDER
     Route: 030
     Dates: start: 2013
  4. SEROQUEL [Concomitant]
     Indication: SCHIZOAFFECTIVE DISORDER
     Route: 048
  5. DEPAKOTE ER [Concomitant]
     Indication: SCHIZOAFFECTIVE DISORDER
     Dosage: 1500 PILL500 IN THE MORNING AND 1000 IN THE NIGHT
     Route: 048
  6. TRIHEXYPHENIDYL [Concomitant]
     Indication: PRODUCT USED FOR UNKNOWN INDICATION
     Route: 065

REACTIONS (11)
  - Self injurious behaviour [Unknown]
  - Ankle fracture [Unknown]
  - Aggression [Unknown]
  - Akathisia [Unknown]
  - Mania [Unknown]
  - Hallucination [Unknown]
  - Hyperhidrosis [Unknown]
  - Agitation [Unknown]
  - Tremor [Unknown]
  - Delusion [Unknown]
  - Drug ineffective [Unknown]
